FAERS Safety Report 9302630 (Version 1)
Quarter: 2013Q2

REPORT INFORMATION
  Report Type: Spontaneous
  Country: GB (occurrence: None)
  Receive Date: 20130517
  Receipt Date: 20130517
  Transmission Date: 20140414
  Serious: Yes (Death, Other)
  Sender: FDA-Public Use
  Company Number: 2013P1005675

PATIENT
  Sex: 0

DRUGS (3)
  1. MITOMYCIN [Suspect]
     Indication: ANAL SQUAMOUS CELL CARCINOMA
     Route: 042
  2. FLUOROURACIL [Suspect]
     Indication: ANAL SQUAMOUS CELL CARCINOMA
     Route: 042
  3. CISPLATIN [Suspect]
     Indication: ANAL SQUAMOUS CELL CARCINOMA
     Route: 042

REACTIONS (1)
  - Sepsis [None]
